FAERS Safety Report 5899347-1 (Version None)
Quarter: 2008Q3

REPORT INFORMATION
  Report Type: 
  Country: None (occurrence: None)
  Receive Date: 20080924
  Receipt Date: 20080912
  Transmission Date: 20090109
  Serious: Yes (Other)
  Sender: FDA-Public Use
  Company Number: 2008BI019617

PATIENT
  Age: 38 Year
  Sex: Female

DRUGS (3)
  1. TYSABRI [Suspect]
     Indication: MULTIPLE SCLEROSIS
     Dosage: 300 MG; QM; IV
     Route: 042
     Dates: start: 20070712, end: 20080630
  2. VITAMIN AND MINERAL PRENATAL SUPPLEMENT W/ FOLIC ACID CAP [Concomitant]
  3. ZOLOFT [Concomitant]

REACTIONS (4)
  - ABNORMAL PRODUCT OF CONCEPTION [None]
  - ABORTION INCOMPLETE [None]
  - ABORTION MISSED [None]
  - DRUG EXPOSURE DURING PREGNANCY [None]
